FAERS Safety Report 20035602 (Version 2)
Quarter: 2021Q4

REPORT INFORMATION
  Report Type: Spontaneous
  Country: US (occurrence: None)
  Receive Date: 20211104
  Receipt Date: 20211224
  Transmission Date: 20220303
  Serious: No
  Sender: FDA-Public Use
  Company Number: 2021A788880

PATIENT
  Age: 70 Year
  Sex: Female
  Weight: 83 kg

DRUGS (1)
  1. BYDUREON BCISE [Suspect]
     Active Substance: EXENATIDE
     Indication: Diabetes mellitus
     Route: 058

REACTIONS (4)
  - Atrial fibrillation [Unknown]
  - Incorrect dose administered by device [Unknown]
  - Device malfunction [Unknown]
  - Device leakage [Unknown]

NARRATIVE: CASE EVENT DATE: 20210101
